FAERS Safety Report 8582546-8 (Version None)
Quarter: 2012Q3

REPORT INFORMATION
  Report Type: 
  Country: None (occurrence: None)
  Receive Date: 20120809
  Receipt Date: 20120730
  Transmission Date: 20120928
  Serious: Yes (Hospitalization)
  Sender: FDA-Public Use
  Company Number: US-ROCHE-1094569

PATIENT
  Sex: Male
  Weight: 86.26 kg

DRUGS (18)
  1. ASPIRIN [Concomitant]
     Route: 048
  2. CLOPIDOGREL [Concomitant]
     Route: 048
  3. LACOSAMIDE [Concomitant]
     Dosage: DOSE INCREASED
     Route: 048
  4. LOSARTAN POTASSIUM [Concomitant]
     Route: 048
  5. ATENOLOL [Concomitant]
     Route: 048
  6. FUROSEMIDE [Concomitant]
     Route: 048
  7. LOSARTAN POTASSIUM [Concomitant]
     Route: 048
  8. SPIRONOLACTONE [Concomitant]
     Route: 048
  9. SIMVASTATIN [Concomitant]
     Route: 048
  10. DONEPEZIL HCL [Concomitant]
     Route: 048
  11. LEVETIRACETAM [Concomitant]
     Route: 048
  12. TRAZODONE HYDROCHLORIDE [Concomitant]
     Dosage: BEDTIME AS NEEDED
     Route: 048
  13. LACOSAMIDE [Concomitant]
     Route: 048
  14. LACOSAMIDE [Concomitant]
     Dosage: DOSE INCREASED
     Route: 048
  15. AVASTIN [Suspect]
     Indication: MENINGIOMA
     Dates: start: 20111005
  16. CARVEDILOL [Concomitant]
  17. FENOFIBRATE [Concomitant]
     Route: 048
  18. BENAZEPRIL HYDROCHLORIDE [Concomitant]
     Route: 048

REACTIONS (3)
  - DYSARTHRIA [None]
  - EJECTION FRACTION DECREASED [None]
  - HEMIPARESIS [None]
